FAERS Safety Report 20881887 (Version 1)
Quarter: 2022Q2

REPORT INFORMATION
  Report Type: Spontaneous
  Country: BR (occurrence: None)
  Receive Date: 20220527
  Receipt Date: 20220527
  Transmission Date: 20220721
  Serious: Yes (Hospitalization)
  Sender: FDA-Public Use
  Company Number: BR-ROCHE-3070256

PATIENT
  Age: 63 Year
  Sex: Male
  Weight: 70 kg

DRUGS (1)
  1. MABTHERA [Suspect]
     Active Substance: RITUXIMAB
     Indication: Neoplasm skin
     Route: 042
     Dates: start: 20181127

REACTIONS (3)
  - Erythema [Recovered/Resolved]
  - Flushing [Recovered/Resolved]
  - Off label use [Unknown]

NARRATIVE: CASE EVENT DATE: 20181127
